FAERS Safety Report 9360233 (Version 1)
Quarter: 2013Q2

REPORT INFORMATION
  Report Type: Spontaneous
  Country: IN (occurrence: IN)
  Receive Date: 20130621
  Receipt Date: 20130621
  Transmission Date: 20140414
  Serious: Yes (Life-Threatening, Hospitalization, Other)
  Sender: FDA-Public Use
  Company Number: IN-SUN PHARMACEUTICAL INDUSTRIES LTD-2013SUN00828

PATIENT
  Age: 11 Month
  Sex: Male

DRUGS (1)
  1. AMLODIPINE [Suspect]
     Indication: LOWER RESPIRATORY TRACT INFECTION
     Route: 065

REACTIONS (12)
  - Cardiac failure congestive [Recovering/Resolving]
  - Pulmonary oedema [Recovering/Resolving]
  - Respiratory distress [Recovering/Resolving]
  - Hypovolaemic shock [None]
  - Hyperglycaemia [Recovering/Resolving]
  - Vomiting [Recovering/Resolving]
  - Renal failure [Recovering/Resolving]
  - Heart sounds abnormal [Recovering/Resolving]
  - Lethargy [Recovering/Resolving]
  - Toxicity to various agents [Recovering/Resolving]
  - Drug dispensing error [Recovering/Resolving]
  - Overdose [None]
